FAERS Safety Report 5430788-2 (Version None)
Quarter: 2007Q3

REPORT INFORMATION
  Report Type: 
  Country: None (occurrence: None)
  Receive Date: 20070830
  Receipt Date: 20061206
  Transmission Date: 20080115
  Serious: Yes (Other)
  Sender: FDA-Public Use
  Company Number: A0628329A

PATIENT
  Age: 29 Year
  Sex: Male
  Weight: 90.9 kg

DRUGS (1)
  1. WELLBUTRIN XL [Suspect]
     Indication: TOBACCO ABUSE
     Route: 065

REACTIONS (2)
  - ERYTHEMA MULTIFORME [None]
  - URTICARIA [None]
